FAERS Safety Report 14194517 (Version 1)
Quarter: 2017Q4

REPORT INFORMATION
  Report Type: Spontaneous
  Country: CA (occurrence: CA)
  Receive Date: 20171115
  Receipt Date: 20171115
  Transmission Date: 20180321
  Serious: Yes (Disabling)
  Sender: FDA-Public Use
  Company Number: None

PATIENT
  Age: 15 Year
  Sex: Male
  Weight: 45 kg

DRUGS (4)
  1. MOMETASONE [Suspect]
     Active Substance: MOMETASONE
     Indication: ECZEMA
     Dosage: QUANTITY:1 TUBE;?
     Route: 061
     Dates: start: 20101101, end: 20161101
  2. PROTOPIC [Suspect]
     Active Substance: TACROLIMUS
  3. PREDNISONE. [Suspect]
     Active Substance: PREDNISONE
  4. CLOBETASOL [Suspect]
     Active Substance: CLOBETASOL

REACTIONS (4)
  - Pain [None]
  - Steroid withdrawal syndrome [None]
  - Alopecia [None]
  - Skin exfoliation [None]

NARRATIVE: CASE EVENT DATE: 20161101
